FAERS Safety Report 14637603 (Version 1)
Quarter: 2018Q1

REPORT INFORMATION
  Report Type: Spontaneous
  Country: US (occurrence: US)
  Receive Date: 20180314
  Receipt Date: 20180314
  Transmission Date: 20180509
  Serious: Yes (Hospitalization)
  Sender: FDA-Public Use
  Company Number: US-ELI_LILLY_AND_COMPANY-US201803001641

PATIENT
  Age: 87 Year
  Sex: Female

DRUGS (5)
  1. HUMULIN N [Suspect]
     Active Substance: INSULIN HUMAN
     Dosage: UNK UNK, UNKNOWN
     Route: 065
  2. HUMALOG [Suspect]
     Active Substance: INSULIN LISPRO
     Indication: PRODUCT USED FOR UNKNOWN INDICATION
     Dosage: 3 U, UNKNOWN
     Route: 065
     Dates: start: 2006
  3. HUMULIN N [Suspect]
     Active Substance: INSULIN HUMAN
     Indication: PRODUCT USED FOR UNKNOWN INDICATION
     Dosage: UNK UNK, UNKNOWN
     Route: 065
     Dates: start: 201702
  4. HUMALOG [Suspect]
     Active Substance: INSULIN LISPRO
     Dosage: 5 U, UNKNOWN
     Route: 065
  5. PREDNISONE. [Suspect]
     Active Substance: PREDNISONE
     Indication: PRODUCT USED FOR UNKNOWN INDICATION
     Dosage: UNK UNK, UNKNOWN
     Route: 065

REACTIONS (5)
  - Incorrect drug administration duration [Unknown]
  - Temporal arteritis [Unknown]
  - Fall [Recovering/Resolving]
  - Blood glucose increased [Recovering/Resolving]
  - Back pain [Not Recovered/Not Resolved]

NARRATIVE: CASE EVENT DATE: 201701
